FAERS Safety Report 24962930 (Version 2)
Quarter: 2025Q3

REPORT INFORMATION
  Report Type: Spontaneous
  Country: US (occurrence: US)
  Receive Date: 20250213
  Receipt Date: 20250804
  Transmission Date: 20251020
  Serious: No
  Sender: SANOFI AVENTIS
  Company Number: US-SA-2025SA041273

PATIENT
  Age: 58 Year
  Sex: Female

DRUGS (3)
  1. DUPIXENT [Suspect]
     Active Substance: DUPILUMAB
     Indication: Dermatitis
     Dosage: 300 MG, QOW
     Route: 058
     Dates: start: 202205
  2. DUPIXENT [Suspect]
     Active Substance: DUPILUMAB
     Indication: Skin hypertrophy
  3. AUGMENTIN [Suspect]
     Active Substance: AMOXICILLIN\CLAVULANATE POTASSIUM
     Route: 065

REACTIONS (5)
  - Dark circles under eyes [Unknown]
  - Eye swelling [Unknown]
  - Hypersensitivity [Unknown]
  - Product use in unapproved indication [Unknown]
  - Eye pruritus [Unknown]

NARRATIVE: CASE EVENT DATE: 20220501
